FAERS Safety Report 9180510 (Version 1)
Quarter: 2013Q1

REPORT INFORMATION
  Report Type: Spontaneous
  Country: US (occurrence: None)
  Receive Date: 20130320
  Receipt Date: 20130320
  Transmission Date: 20140127
  Serious: Yes (Other)
  Sender: FDA-Public Use
  Company Number: AXC-2013-000095

PATIENT
  Age: 41 Year
  Sex: Female

DRUGS (5)
  1. MESALAMINE [Suspect]
     Indication: CROHN^S DISEASE
  2. INFLIXIMAB [Suspect]
     Dosage: 5 MG/KG, EVERY 8 WEEKS, UNKNOWN
     Dates: start: 2001, end: 2003
  3. 6 MERCAPTOPURINE (MERCAPTOPURINE) UNKNOWN UNK TO UNK [Concomitant]
  4. PREDNISONE (PREDNISONE) UNKNOWN UNK TO UNK [Concomitant]
  5. FLAGYL /00012501/ (METRONIDAZOLE) UNKNOWN UNK TO UNK [Concomitant]

REACTIONS (11)
  - Crohn^s disease [None]
  - Condition aggravated [None]
  - Anal fistula [None]
  - Anal abscess [None]
  - Local swelling [None]
  - Arthralgia [None]
  - Arthritis [None]
  - Neuropathy peripheral [None]
  - Joint swelling [None]
  - Paraesthesia [None]
  - Lupus-like syndrome [None]
